FAERS Safety Report 5571801-1 (Version None)
Quarter: 2007Q4

REPORT INFORMATION
  Report Type: 
  Country: None (occurrence: None)
  Receive Date: 20071221
  Receipt Date: 20071210
  Transmission Date: 20080405
  Serious: Yes (Hospitalization)
  Sender: FDA-Public Use
  Company Number: B0500397A

PATIENT
  Age: 91 Year
  Sex: Female

DRUGS (9)
  1. PAROXETINE HCL [Suspect]
     Indication: DRUG USE FOR UNKNOWN INDICATION
     Dosage: 1UNIT PER DAY
     Route: 048
     Dates: start: 20070626, end: 20070718
  2. LOPRIL [Suspect]
     Indication: HYPERTENSION
     Dosage: 50MG TWICE PER DAY
     Route: 048
     Dates: start: 20070530, end: 20070718
  3. LASILIX [Suspect]
     Indication: HYPERTENSION
     Dosage: 20MG PER DAY
     Route: 048
     Dates: start: 20070530, end: 20070718
  4. REMINYL [Suspect]
     Indication: DEMENTIA
     Dosage: 8MG PER DAY
     Route: 048
     Dates: start: 20070416, end: 20070717
  5. LEVOTHYROX [Concomitant]
     Indication: HYPOTHYROIDISM
     Route: 048
  6. CARDENSIEL [Concomitant]
     Indication: HYPERTENSION
     Dosage: 5MG PER DAY
     Route: 048
     Dates: start: 20070530
  7. CORDARONE [Concomitant]
     Indication: ATRIAL FIBRILLATION
     Route: 048
     Dates: start: 20070530
  8. KARDEGIC [Concomitant]
     Dosage: 75MG PER DAY
     Route: 048
  9. ATARAX [Concomitant]
     Indication: ANXIETY
     Route: 048

REACTIONS (2)
  - DEHYDRATION [None]
  - RENAL FAILURE [None]
